FAERS Safety Report 6693861-7 (Version None)
Quarter: 2010Q2

REPORT INFORMATION
  Report Type: 
  Country: None (occurrence: None)
  Receive Date: 20100423
  Receipt Date: 20100413
  Transmission Date: 20101027
  Serious: Yes (Death)
  Sender: FDA-Public Use
  Company Number: PHHY2010ZA21552

PATIENT

DRUGS (2)
  1. VAA489A VAL_AML+TAB [Suspect]
     Dosage: UNK
  2. NATRILIX [Concomitant]
     Indication: HYPERTENSION
     Dosage: 7.5 MG, UNK
     Route: 048
     Dates: start: 20090409

REACTIONS (1)
  - BLADDER CANCER [None]
